FAERS Safety Report 9272633 (Version 2)
Quarter: 2013Q2

REPORT INFORMATION
  Report Type: Spontaneous
  Country: CH (occurrence: CH)
  Receive Date: 20130506
  Receipt Date: 20130517
  Transmission Date: 20140414
  Serious: Yes (Other)
  Sender: FDA-Public Use
  Company Number: CH-JNJFOC-20130414466

PATIENT
  Age: 70 Year
  Sex: Male

DRUGS (8)
  1. INFLIXIMAB, RECOMBINANT [Suspect]
     Indication: GRANULOMATOSIS WITH POLYANGIITIS
     Route: 042
  2. INFLIXIMAB, RECOMBINANT [Suspect]
     Indication: GRANULOMATOSIS WITH POLYANGIITIS
     Dosage: SEVENTH INFUSION
     Route: 042
  3. METHOTREXATE [Suspect]
     Indication: CONGENITAL SYPHILITIC OSTEOCHONDRITIS
     Route: 058
  4. PREDNISONE [Suspect]
     Indication: CONGENITAL SYPHILITIC OSTEOCHONDRITIS
     Route: 065
  5. CYCLOPHOSPHAMIDE [Suspect]
     Indication: CONGENITAL SYPHILITIC OSTEOCHONDRITIS
     Route: 065
  6. CYCLOPHOSPHAMIDE [Suspect]
     Indication: CONGENITAL SYPHILITIC OSTEOCHONDRITIS
     Route: 065
  7. METHYLPREDNISOLONE [Concomitant]
     Route: 065
  8. RITUXIMAB [Concomitant]
     Dosage: FOUR TIMES IN WEEKLY INTERVALS
     Route: 065

REACTIONS (2)
  - Systemic lupus erythematosus [Unknown]
  - Off label use [Unknown]
